FAERS Safety Report 10426756 (Version 2)
Quarter: 2014Q3

REPORT INFORMATION
  Report Type: Report from Study
  Country: US (occurrence: US)
  Receive Date: 20140903
  Receipt Date: 20140903
  Transmission Date: 20150326
  Serious: Yes (Death, Hospitalization, Other)
  Sender: FDA-Public Use
  Company Number: US-ASTELLAS-2014US010545

PATIENT
  Age: 66 Year
  Sex: Female

DRUGS (2)
  1. ERLOTINIB [Suspect]
     Active Substance: ERLOTINIB
     Indication: MALIGNANT RESPIRATORY TRACT NEOPLASM
     Route: 048
     Dates: end: 20050713
  2. ERLOTINIB [Suspect]
     Active Substance: ERLOTINIB
     Indication: LUNG ADENOCARCINOMA

REACTIONS (6)
  - Cerebrovascular accident [Unknown]
  - Rash [Recovered/Resolved]
  - Non-small cell lung cancer metastatic [Fatal]
  - Dysphagia [Unknown]
  - Dermatitis exfoliative [Recovered/Resolved]
  - VIIth nerve paralysis [Unknown]

NARRATIVE: CASE EVENT DATE: 200507
